FAERS Safety Report 5055672-8 (Version None)
Quarter: 2006Q3

REPORT INFORMATION
  Report Type: 
  Country: None (occurrence: None)
  Receive Date: 20060714
  Receipt Date: 20060627
  Transmission Date: 20061208
  Serious: Yes (Other)
  Sender: FDA-Public Use
  Company Number: US200606005999

PATIENT
  Age: 64 Year
  Sex: Female

DRUGS (6)
  1. ALIMTA [Suspect]
     Indication: NON-SMALL CELL LUNG CANCER
     Dosage: 500 MG/M2
     Dates: start: 20050907
  2. CARBOPLATIN [Concomitant]
  3. FOLIC ACID [Concomitant]
  4. CYANOCOBALAMIN [Concomitant]
  5. DEXAMETHASONE TAB [Concomitant]
  6. PROCRIT [Concomitant]

REACTIONS (1)
  - CEREBROVASCULAR ACCIDENT [None]
